FAERS Safety Report 9162745 (Version 1)
Quarter: 2013Q1

REPORT INFORMATION
  Report Type: Spontaneous
  Country: US (occurrence: None)
  Receive Date: 20130227
  Receipt Date: 20130227
  Transmission Date: 20140127
  Serious: Yes (Death)
  Sender: FDA-Public Use
  Company Number: 145701

PATIENT
  Age: 78 Year
  Sex: Female
  Weight: 50 kg

DRUGS (1)
  1. LEUCOVORIN CALCIUM FOR INJ. 50MG - BEDFORD LABS, INC. [Suspect]
     Indication: COLORECTAL CANCER METASTATIC
     Dates: start: 20120215, end: 20120627

REACTIONS (6)
  - Acute hepatic failure [None]
  - Hepatorenal syndrome [None]
  - Hepatic haematoma [None]
  - Haemoglobin decreased [None]
  - Haematocrit decreased [None]
  - Mean cell haemoglobin concentration decreased [None]
